FAERS Safety Report 12853985 (Version 1)
Quarter: 2016Q4

REPORT INFORMATION
  Report Type: Spontaneous
  Country: US (occurrence: US)
  Receive Date: 20161017
  Receipt Date: 20161017
  Transmission Date: 20170207
  Serious: No
  Sender: FDA-Public Use
  Company Number: US-BAYER-2016-199103

PATIENT
  Age: 56 Year
  Sex: Male
  Weight: 91.16 kg

DRUGS (6)
  1. ATORVASTATIN [Concomitant]
     Active Substance: ATORVASTATIN
  2. XANAX [Concomitant]
     Active Substance: ALPRAZOLAM
  3. ONE A DAY MEN^S 50+ ADVANTAGE [Concomitant]
  4. METFORMIN [Concomitant]
     Active Substance: METFORMIN HYDROCHLORIDE
  5. COENZYME Q10 [Concomitant]
     Active Substance: UBIDECARENONE
  6. MIRALAX [Suspect]
     Active Substance: POLYETHYLENE GLYCOL 3350
     Indication: GASTROINTESTINAL DISORDER
     Dosage: UNK
     Route: 048
     Dates: start: 201504

REACTIONS (2)
  - Circumstance or information capable of leading to medication error [None]
  - Product use issue [Unknown]

NARRATIVE: CASE EVENT DATE: 201504
